FAERS Safety Report 26096614 (Version 1)
Quarter: 2025Q4

REPORT INFORMATION
  Report Type: Spontaneous
  Country: US (occurrence: US)
  Receive Date: 20251127
  Receipt Date: 20251127
  Transmission Date: 20260118
  Serious: No
  Sender: PADAGIS
  Company Number: US-PADAGIS-2025PAD01487

PATIENT

DRUGS (3)
  1. TRIAMCINOLONE ACETONIDE [Suspect]
     Active Substance: TRIAMCINOLONE ACETONIDE
     Indication: Rash pruritic
     Dosage: UNK
     Route: 061
  2. HYDROXYZINE [Suspect]
     Active Substance: HYDROXYZINE HYDROCHLORIDE
     Indication: Rash pruritic
     Dosage: 10 MG
     Route: 048
  3. BACITRACIN ZINC [Concomitant]
     Indication: Rash pruritic
     Dosage: 500 UNITS/G
     Route: 061

REACTIONS (1)
  - Therapy partial responder [Unknown]
